FAERS Safety Report 9255399 (Version 1)
Quarter: 2013Q2

REPORT INFORMATION
  Report Type: Spontaneous
  Country: US (occurrence: None)
  Receive Date: 20130418
  Receipt Date: 20130418
  Transmission Date: 20140414
  Serious: Yes (Hospitalization)
  Sender: FDA-Public Use
  Company Number: UTC-031481

PATIENT
  Age: 36 Year
  Sex: Female
  Weight: 79.55 kg

DRUGS (3)
  1. REMODULIN (10 MILLIGRAM/MILLILITERS, INJECTION FOR INFUSION) (TREPROSTINIL SODIUM) [Suspect]
     Dosage: 158.4 UG/KG (0.11 UG/KG, 1 IN 1 MIN), SUBCUTANEOUS
  2. LETAIRIS (AMBRISENTAN) (TABLET) (AMBRISENTAN) [Concomitant]
  3. VENTAVIS (ILOPROST) [Concomitant]
     Indication: PULMONARY ARTERIAL HYPERTENSION
     Dosage: 1 IN 1 MIN, SUBCUTANEOUS
     Dates: start: 20110324

REACTIONS (3)
  - Syncope [None]
  - Pallor [None]
  - Lip discolouration [None]
